FAERS Safety Report 9632497 (Version 2)
Quarter: 2013Q4

REPORT INFORMATION
  Report Type: Spontaneous
  Country: NL (occurrence: None)
  Receive Date: 20131016
  Receipt Date: 20131220
  Transmission Date: 20140711
  Serious: Yes (Other)
  Sender: FDA-Public Use
  Company Number: NL-013243

PATIENT
  Age: 73 Year
  Sex: Male

DRUGS (6)
  1. FIRMAGON [Suspect]
     Indication: PROSTATE CANCER
     Route: 058
     Dates: start: 20120430, end: 20120430
  2. ASCAL /00002702/ [Concomitant]
  3. FUROSEMIDE [Concomitant]
  4. LOSARTAN [Concomitant]
  5. DOXAZOSINE [Concomitant]
  6. SIMVASTATINE [Concomitant]

REACTIONS (1)
  - Depression [None]
